FAERS Safety Report 9670824 (Version 1)
Quarter: 2013Q4

REPORT INFORMATION
  Report Type: Spontaneous
  Country: US (occurrence: US)
  Receive Date: 20131106
  Receipt Date: 20131106
  Transmission Date: 20140711
  Serious: Yes (Other)
  Sender: FDA-Public Use
  Company Number: PHEH2013US023038

PATIENT
  Age: 56 Year
  Sex: Female

DRUGS (5)
  1. DIOVAN [Suspect]
     Dosage: 320 MG, UNK
  2. DIOVAN HCT [Suspect]
  3. HYDROCHLOROTHIAZIDE [Suspect]
  4. TRAMADOL [Suspect]
     Indication: PAIN
     Dosage: UNK UKN, UNK
  5. BYSTOLIC [Concomitant]
     Indication: BLOOD PRESSURE

REACTIONS (3)
  - Road traffic accident [Unknown]
  - Blood pressure increased [Unknown]
  - Pain [Unknown]
